FAERS Safety Report 7421016-7 (Version None)
Quarter: 2011Q2

REPORT INFORMATION
  Report Type: 
  Country: None (occurrence: None)
  Receive Date: 20110418
  Receipt Date: 20110414
  Transmission Date: 20111010
  Serious: Yes (Death, Other)
  Sender: FDA-Public Use
  Company Number: PHHY2011GB31034

PATIENT
  Age: 34 Year
  Sex: Female

DRUGS (9)
  1. DAUNORUBICIN HCL [Suspect]
     Indication: CHLOROMA
  2. CYCLOPHOSPHAMIDE [Suspect]
     Indication: BONE MARROW CONDITIONING REGIMEN
  3. CYTARABINE [Suspect]
     Indication: CHLOROMA
  4. THIOGUANINE [Suspect]
     Indication: CHLOROMA
  5. FLUDARABINE PHOSPHATE [Suspect]
     Indication: CHLOROMA
  6. IDARUBICIN HCL [Suspect]
     Indication: CHLOROMA
  7. CAMPATH [Suspect]
     Indication: BONE MARROW CONDITIONING REGIMEN
  8. IRRADIATION [Suspect]
     Indication: BONE MARROW CONDITIONING REGIMEN
  9. GRANULOCYTE COLONY STIMULATING FACTOR [Suspect]
     Indication: CHLOROMA

REACTIONS (10)
  - NEUTROPENIA [None]
  - NEUTROPENIC SEPSIS [None]
  - APLASIA [None]
  - THERAPEUTIC RESPONSE DECREASED [None]
  - CYTOMEGALOVIRUS INFECTION [None]
  - CYTOMEGALOVIRUS TEST POSITIVE [None]
  - CYTOMEGALOVIRUS CHORIORETINITIS [None]
  - TRANSPLANT FAILURE [None]
  - PNEUMONIA FUNGAL [None]
  - ACUTE MYELOID LEUKAEMIA [None]
